FAERS Safety Report 14642394 (Version 1)
Quarter: 2018Q1

REPORT INFORMATION
  Report Type: Spontaneous
  Country: US (occurrence: US)
  Receive Date: 20180315
  Receipt Date: 20180315
  Transmission Date: 20180509
  Serious: Yes (Hospitalization)
  Sender: FDA-Public Use
  Company Number: US-ASTRAZENECA-2018SE31120

PATIENT
  Age: 261 Day
  Sex: Male

DRUGS (2)
  1. SYNAGIS [Suspect]
     Active Substance: PALIVIZUMAB
     Dosage: UNKNOWN
     Route: 030
     Dates: start: 20171110, end: 20171219
  2. SYNAGIS [Suspect]
     Active Substance: PALIVIZUMAB
     Dosage: UNKNOWN
     Route: 030
     Dates: start: 20180129

REACTIONS (3)
  - Respiratory syncytial virus infection [Unknown]
  - Bronchiolitis [Unknown]
  - Vomiting [Unknown]

NARRATIVE: CASE EVENT DATE: 20180110
